FAERS Safety Report 5476744-X (Version None)
Quarter: 2007Q4

REPORT INFORMATION
  Report Type: 
  Country: None (occurrence: None)
  Receive Date: 20071002
  Receipt Date: 20070919
  Transmission Date: 20080405
  Serious: Yes (Other)
  Sender: FDA-Public Use
  Company Number: 237379K07USA

PATIENT
  Age: 48 Year
  Sex: Male
  Weight: 123.3784 kg

DRUGS (2)
  1. REBIF [Suspect]
     Indication: MULTIPLE SCLEROSIS
     Dosage: 44 MCG, 3 IN 1 WEEKS, SUBCUTANEOUS
     Route: 058
     Dates: start: 20030630
  2. LOPID [Concomitant]

REACTIONS (6)
  - BLOOD GLUCOSE FLUCTUATION [None]
  - DIABETES MELLITUS [None]
  - ECONOMIC PROBLEM [None]
  - FATIGUE [None]
  - HYPERCHOLESTEROLAEMIA [None]
  - SLEEP APNOEA SYNDROME [None]
